FAERS Safety Report 7945618-4 (Version None)
Quarter: 2011Q4

REPORT INFORMATION
  Report Type: 
  Country: None (occurrence: None)
  Receive Date: 20111129
  Receipt Date: 20110206
  Transmission Date: 20120403
  Serious: Yes (Other)
  Sender: FDA-Public Use
  Company Number: US-ABBOTT-11P-163-0702408-00

PATIENT
  Age: 51 Year
  Sex: Female

DRUGS (3)
  1. HUMIRA [Suspect]
     Indication: CROHN'S DISEASE
     Route: 058
     Dates: start: 20101104
  2. AMITRIPTYLINE HCL [Concomitant]
     Indication: INSOMNIA
  3. AMBIEN [Concomitant]
     Indication: INSOMNIA

REACTIONS (10)
  - INJECTION SITE PAPULE [None]
  - INJECTION SITE WARMTH [None]
  - MALAISE [None]
  - INJECTION SITE DISCOLOURATION [None]
  - DYSPHAGIA [None]
  - ANXIETY [None]
  - HYPOAESTHESIA [None]
  - DYSPNOEA [None]
  - CHEST DISCOMFORT [None]
  - INJECTION SITE PRURITUS [None]
